FAERS Safety Report 25450691 (Version 1)
Quarter: 2025Q2

REPORT INFORMATION
  Report Type: Spontaneous
  Country: US (occurrence: US)
  Receive Date: 20250618
  Receipt Date: 20250618
  Transmission Date: 20250716
  Serious: Yes (Death, Hospitalization)
  Sender: MYLAN
  Company Number: US-MYLANLABS-2025M1050376

PATIENT
  Age: 71 Year
  Sex: Female

DRUGS (24)
  1. EPOPROSTENOL [Suspect]
     Active Substance: EPOPROSTENOL
     Indication: Mechanical ventilation
  2. EPOPROSTENOL [Suspect]
     Active Substance: EPOPROSTENOL
     Indication: Acute respiratory distress syndrome
     Route: 055
  3. EPOPROSTENOL [Suspect]
     Active Substance: EPOPROSTENOL
     Route: 055
  4. EPOPROSTENOL [Suspect]
     Active Substance: EPOPROSTENOL
  5. ALBENDAZOLE [Suspect]
     Active Substance: ALBENDAZOLE
     Indication: Disseminated strongyloidiasis
     Dosage: 400 MILLIGRAM, BID
  6. ALBENDAZOLE [Suspect]
     Active Substance: ALBENDAZOLE
     Dosage: 400 MILLIGRAM, BID
     Route: 065
  7. ALBENDAZOLE [Suspect]
     Active Substance: ALBENDAZOLE
     Dosage: 400 MILLIGRAM, BID
     Route: 065
  8. ALBENDAZOLE [Suspect]
     Active Substance: ALBENDAZOLE
     Dosage: 400 MILLIGRAM, BID
  9. IVERMECTIN [Suspect]
     Active Substance: IVERMECTIN
     Indication: Disseminated strongyloidiasis
  10. IVERMECTIN [Suspect]
     Active Substance: IVERMECTIN
     Route: 058
  11. IVERMECTIN [Suspect]
     Active Substance: IVERMECTIN
     Route: 058
  12. IVERMECTIN [Suspect]
     Active Substance: IVERMECTIN
  13. PROGRAF [Concomitant]
     Active Substance: TACROLIMUS
     Indication: Immunosuppressant drug therapy
  14. PROGRAF [Concomitant]
     Active Substance: TACROLIMUS
     Route: 065
  15. PROGRAF [Concomitant]
     Active Substance: TACROLIMUS
     Route: 065
  16. PROGRAF [Concomitant]
     Active Substance: TACROLIMUS
  17. CELLCEPT [Concomitant]
     Active Substance: MYCOPHENOLATE MOFETIL
     Indication: Immunosuppressant drug therapy
  18. CELLCEPT [Concomitant]
     Active Substance: MYCOPHENOLATE MOFETIL
     Route: 065
  19. CELLCEPT [Concomitant]
     Active Substance: MYCOPHENOLATE MOFETIL
     Route: 065
  20. CELLCEPT [Concomitant]
     Active Substance: MYCOPHENOLATE MOFETIL
  21. DELTASONE [Concomitant]
     Active Substance: PREDNISONE
     Indication: Immunosuppressant drug therapy
  22. DELTASONE [Concomitant]
     Active Substance: PREDNISONE
     Route: 065
  23. DELTASONE [Concomitant]
     Active Substance: PREDNISONE
     Route: 065
  24. DELTASONE [Concomitant]
     Active Substance: PREDNISONE

REACTIONS (2)
  - Drug ineffective [Fatal]
  - Off label use [Unknown]
